FAERS Safety Report 17091883 (Version 1)
Quarter: 2019Q4

REPORT INFORMATION
  Report Type: Spontaneous
  Country: FR (occurrence: FR)
  Receive Date: 20191129
  Receipt Date: 20191129
  Transmission Date: 20200122
  Serious: Yes (Hospitalization)
  Sender: FDA-Public Use
  Company Number: FR-TEVA-2019-FR-1143070

PATIENT
  Age: 59 Year
  Sex: Male
  Weight: 120 kg

DRUGS (14)
  1. POLERY ADULTES, SIROP [Suspect]
     Active Substance: CODEINE\SISYMBRIUM OFFICINALE WHOLE
     Indication: INFLUENZA LIKE ILLNESS
     Dosage: 1 DF PER 1 TOTAL
     Route: 048
     Dates: start: 20191017, end: 20191017
  2. AMOXICILLINE [Suspect]
     Active Substance: AMOXICILLIN
     Indication: INFLUENZA LIKE ILLNESS
     Route: 048
     Dates: start: 20191017, end: 20191017
  3. SYMBICORT [Suspect]
     Active Substance: BUDESONIDE\FORMOTEROL FUMARATE DIHYDRATE
     Indication: INFLUENZA LIKE ILLNESS
     Dosage: 1 DF PER 1 TOTAL
     Route: 055
     Dates: start: 20191017, end: 20191017
  4. PIVALONE 1 POUR CENT, SUSPENSION NASALE [Concomitant]
     Active Substance: TIXOCORTOL PIVALATE
     Indication: INFLUENZA LIKE ILLNESS
     Dosage: NASAL SUSPENSION; 1 DF PER 1 TOTAL
     Route: 045
     Dates: start: 20191017, end: 20191017
  5. UROREC 8 MG, G?LULE [Concomitant]
     Dosage: 8 MG
     Route: 048
  6. FENOFIBRATE. [Concomitant]
     Active Substance: FENOFIBRATE
     Dosage: 160 MG
     Route: 048
  7. HALDOL DECANOAS, SOLUTION INJECTABLE [Concomitant]
     Active Substance: HALOPERIDOL DECANOATE
     Dosage: 250 MG PER 1 MONTH
     Route: 030
  8. TERCIAN 25 MG, COMPRIM? PELLICUL? S?CABLE [Concomitant]
     Active Substance: CYAMEMAZINE
     Dosage: 25 MG
     Route: 048
  9. LEPTICUR 10 MG, COMPRIM? [Concomitant]
     Active Substance: TROPATEPINE HYDROCHLORIDE
     Dosage: 10 MG
     Route: 048
  10. KARDEGIC [Concomitant]
     Active Substance: ASPIRIN DL-LYSINE
     Dosage: 75 MG
     Route: 048
  11. EXFORGE [Concomitant]
     Active Substance: AMLODIPINE BESYLATE\VALSARTAN
     Dosage: 10 MG / 160 MG; 1 DF
     Route: 048
  12. ADENURIC 80 MG, COMPRIM? PELLICUL? [Concomitant]
     Active Substance: FEBUXOSTAT
     Dosage: 80 MG
     Route: 048
  13. CHLORHYDRATE DE MIANSERINE [Concomitant]
     Active Substance: MIANSERIN HYDROCHLORIDE
     Dosage: 30 MG
     Route: 048
  14. PREDNISONE. [Suspect]
     Active Substance: PREDNISONE
     Indication: INFLUENZA LIKE ILLNESS
     Dosage: 1 DF PER 1 TOTAL
     Route: 048
     Dates: start: 20191017, end: 20191017

REACTIONS (1)
  - Anaphylactic shock [Recovered/Resolved]

NARRATIVE: CASE EVENT DATE: 20191017
